FAERS Safety Report 4835299-0 (Version None)
Quarter: 2005Q4

REPORT INFORMATION
  Report Type: 
  Country: None (occurrence: None)
  Receive Date: 20051122
  Receipt Date: 20051004
  Transmission Date: 20060501
  Serious: Yes (Hospitalization)
  Sender: FDA-Public Use
  Company Number: US-MERCK-0510USA03090

PATIENT
  Age: 55 Year
  Sex: Male
  Weight: 125 kg

DRUGS (12)
  1. VIOXX [Suspect]
     Indication: ARTHRITIS
     Route: 048
     Dates: start: 20021119, end: 20040901
  2. VIOXX [Suspect]
     Route: 048
     Dates: start: 20021119, end: 20040901
  3. NEXIUM [Concomitant]
     Route: 065
  4. TORSEMIDE [Concomitant]
     Route: 065
  5. PLAVIX [Concomitant]
     Route: 065
  6. DIOVAN [Concomitant]
     Route: 065
  7. LIPITOR [Concomitant]
     Route: 065
  8. MINOXIDIL 2% [Concomitant]
     Route: 065
  9. ASPIRIN [Concomitant]
     Route: 065
  10. COREG [Concomitant]
     Route: 065
  11. DARVOCET-N 100 [Concomitant]
     Route: 065
  12. ALPRAZOLAM [Concomitant]
     Route: 065

REACTIONS (1)
  - MYOCARDIAL INFARCTION [None]
